FAERS Safety Report 21928041 (Version 1)
Quarter: 2023Q1

REPORT INFORMATION
  Report Type: Spontaneous
  Country: None (occurrence: BE)
  Receive Date: 20230130
  Receipt Date: 20230130
  Transmission Date: 20230417
  Serious: Yes (Death, Hospitalization, Other)
  Sender: FDA-Public Use
  Company Number: BE-B.Braun Medical Inc.-2137254

PATIENT
  Age: 32 Year
  Sex: Male

DRUGS (4)
  1. ACETAMINOPHEN [Suspect]
     Active Substance: ACETAMINOPHEN
  2. COCAINE [Suspect]
     Active Substance: COCAINE
  3. AMPHETAMINE [Suspect]
     Active Substance: AMPHETAMINE
  4. ALCOHOL [Suspect]
     Active Substance: ALCOHOL

REACTIONS (8)
  - Brain oedema [Fatal]
  - Hypertension [Fatal]
  - Pulseless electrical activity [Fatal]
  - Computerised tomogram abnormal [Fatal]
  - Bradypnoea [Fatal]
  - Circulatory collapse [Fatal]
  - Intracranial pressure increased [Fatal]
  - Pupil fixed [Fatal]
